FAERS Safety Report 12456432 (Version 1)
Quarter: 2016Q2

REPORT INFORMATION
  Report Type: Spontaneous
  Country: GB (occurrence: GB)
  Receive Date: 20160610
  Receipt Date: 20160610
  Transmission Date: 20160815
  Serious: Yes (Disabling)
  Sender: FDA-Public Use
  Company Number: GB-PFIZER INC-2016287831

PATIENT
  Age: 64 Year
  Sex: Male

DRUGS (17)
  1. CLOPIDOGREL [Concomitant]
     Active Substance: CLOPIDOGREL BISULFATE
     Dosage: 75 MG, 1X/DAY
  2. RIFAXIMIN [Concomitant]
     Active Substance: RIFAXIMIN
     Dosage: 550 MG, 2X/DAY (FOR 10 DAYS EVERY 6 WEEKS)
  3. LANSOPRAZOLE. [Concomitant]
     Active Substance: LANSOPRAZOLE
     Dosage: 2 DF, 1X/DAY
  4. PANCREATIN [Concomitant]
     Active Substance: PANCRELIPASE
     Dosage: UNK (AS DIRECTED)
  5. CIPROFLOXACIN. [Concomitant]
     Active Substance: CIPROFLOXACIN
     Dosage: 500 MG, 2X/DAY
  6. NOVORAPID [Concomitant]
     Active Substance: INSULIN ASPART
     Dosage: 100UNITS/ML 10ML AS DIRECT
  7. LOPERAMIDE [Concomitant]
     Active Substance: LOPERAMIDE
     Dosage: 2 MG, UNK
  8. PRAVASTATIN [Concomitant]
     Active Substance: PRAVASTATIN\PRAVASTATIN SODIUM
     Dosage: 20 MG, 1X/DAY (AT NIGHT)
  9. ATORVASTATIN CALCIUM. [Suspect]
     Active Substance: ATORVASTATIN CALCIUM
     Indication: CARDIAC DISORDER
     Dosage: 1 DF, 1X/DAY (AT NIGHT)
     Route: 048
     Dates: start: 20160411, end: 20160509
  10. MONOMIL XL [Concomitant]
     Active Substance: ISOSORBIDE MONONITRATE
     Dosage: 120 MG, 1X/DAY (MORNING)
  11. LOSARTAN. [Concomitant]
     Active Substance: LOSARTAN
     Dosage: 50 MG, 1X/DAY
  12. NICORANDIL [Concomitant]
     Active Substance: NICORANDIL
     Dosage: 10 MG, 2X/DAY
  13. BENDROFLUMETHIAZIDE [Concomitant]
     Active Substance: BENDROFLUMETHIAZIDE
     Dosage: 2.5 MG, 1X/DAY (MORNING)
  14. SALBUTAMOL [Concomitant]
     Active Substance: ALBUTEROL
     Dosage: 200 UG, UNK
     Route: 055
  15. GLUCOSE [Concomitant]
     Active Substance: DEXTROSE
     Dosage: 75 UG, UNK
     Route: 048
  16. ASPIRIN /00002701/ [Concomitant]
     Active Substance: ASPIRIN
     Dosage: 75 MG, 1X/DAY
  17. AMLODIPINE [Concomitant]
     Active Substance: AMLODIPINE BESYLATE
     Dosage: 10 MG, 1X/DAY

REACTIONS (4)
  - Blood pressure decreased [Recovered/Resolved]
  - Back pain [Recovered/Resolved]
  - Blood glucose increased [Recovered/Resolved]
  - Headache [Recovered/Resolved]

NARRATIVE: CASE EVENT DATE: 20160414
